FAERS Safety Report 7982732-1 (Version None)
Quarter: 2011Q4

REPORT INFORMATION
  Report Type: 
  Country: None (occurrence: None)
  Receive Date: 20111215
  Receipt Date: 20111206
  Transmission Date: 20120403
  Serious: Yes (Hospitalization, Other)
  Sender: FDA-Public Use
  Company Number: US-ROCHE-1021843

PATIENT
  Sex: Female
  Weight: 108.96 kg

DRUGS (1)
  1. XELODA [Suspect]
     Indication: BREAST CANCER METASTATIC
     Route: 048
     Dates: start: 20110304

REACTIONS (8)
  - ANXIETY [None]
  - NECK PAIN [None]
  - NEUROPATHY PERIPHERAL [None]
  - METASTATIC NEOPLASM [None]
  - OROPHARYNGEAL PAIN [None]
  - CONSTIPATION [None]
  - VOMITING [None]
  - TEARFULNESS [None]
